FAERS Safety Report 17016202 (Version 1)
Quarter: 2019Q4

REPORT INFORMATION
  Report Type: Spontaneous
  Country: US (occurrence: US)
  Receive Date: 20191109
  Receipt Date: 20191109
  Transmission Date: 20200122
  Serious: Yes (Other)
  Sender: FDA-Public Use
  Company Number: None

PATIENT
  Age: 54 Year
  Sex: Female
  Weight: 93.15 kg

DRUGS (6)
  1. CENTRUM SILVER MULTIVITAMIN [Concomitant]
  2. PREDNISONE 10MG [Concomitant]
     Active Substance: PREDNISONE
  3. OMEGA 369 [Concomitant]
     Active Substance: FISH OIL
  4. COLLAGEN 4000MG [Concomitant]
  5. TRIFLEX JOINT HEALTH SUPPLEMENTS [Concomitant]
  6. PLAQUENIL [Suspect]
     Active Substance: HYDROXYCHLOROQUINE SULFATE
     Indication: RHEUMATOID ARTHRITIS
     Dosage: ?          QUANTITY:1 TABLET(S);?
     Route: 048
     Dates: start: 20191019, end: 20191030

REACTIONS (8)
  - Tongue erythema [None]
  - Oral mucosal erythema [None]
  - Glossodynia [None]
  - Tongue dry [None]
  - Oral pain [None]
  - Rash erythematous [None]
  - Rash pruritic [None]
  - Rash [None]

NARRATIVE: CASE EVENT DATE: 20191031
